FAERS Safety Report 6706415-0 (Version None)
Quarter: 2010Q2

REPORT INFORMATION
  Report Type: 
  Country: None (occurrence: None)
  Receive Date: 20100503
  Receipt Date: 20100423
  Transmission Date: 20101027
  Serious: Yes (Other)
  Sender: FDA-Public Use
  Company Number: PHHY2010FR26214

PATIENT
  Age: 84 Year
  Sex: Female

DRUGS (12)
  1. FEMARA [Suspect]
     Indication: BREAST MASS
     Dosage: 2.5 MG, QD FOR 3 DAYS
  2. CARDENSIEL [Concomitant]
  3. NOVONORM [Concomitant]
     Dosage: 1 MG
  4. KARDEGIC [Concomitant]
  5. PLAVIX [Concomitant]
  6. ALDACTONE [Concomitant]
  7. LASIX [Concomitant]
  8. DISCOTRINE [Concomitant]
  9. EZATOR [Concomitant]
  10. AMIODARONE HCL [Concomitant]
  11. ALLOPURINOL [Concomitant]
  12. TORENTAL [Concomitant]

REACTIONS (1)
  - BLOOD GLUCOSE INCREASED [None]
